FAERS Safety Report 17588135 (Version 5)
Quarter: 2020Q3

REPORT INFORMATION
  Report Type: Report from Study
  Country: US (occurrence: US)
  Receive Date: 20200326
  Receipt Date: 20200914
  Transmission Date: 20201102
  Serious: Yes (Other)
  Sender: FDA-Public Use
  Company Number: NVSC2020US079401

PATIENT
  Age: 57 Year
  Sex: Female

DRUGS (2)
  1. COSENTYX [Suspect]
     Active Substance: SECUKINUMAB
     Indication: PSORIATIC ARTHROPATHY
  2. COSENTYX [Suspect]
     Active Substance: SECUKINUMAB
     Indication: PSORIASIS
     Dosage: 300 MG, BENEATH THE SKIN, USUALLY VIA INJECTION
     Route: 058
     Dates: start: 20200203

REACTIONS (5)
  - Tooth fracture [Unknown]
  - Pyrexia [Recovering/Resolving]
  - Psoriatic arthropathy [Recovering/Resolving]
  - Drug ineffective [Unknown]
  - Swelling [Recovering/Resolving]

NARRATIVE: CASE EVENT DATE: 20200606
